FAERS Safety Report 5508597-5 (Version None)
Quarter: 2007Q4

REPORT INFORMATION
  Report Type: 
  Country: None (occurrence: None)
  Receive Date: 20071107
  Receipt Date: 20071026
  Transmission Date: 20080405
  Serious: Yes (Other)
  Sender: FDA-Public Use
  Company Number: HQWYE812615OCT04

PATIENT
  Sex: Female
  Weight: 79.9 kg

DRUGS (1)
  1. PREMPRO [Suspect]
     Indication: MENOPAUSAL SYMPTOMS
     Dosage: UNSPECIFIED DOSAGE
     Route: 048
     Dates: start: 19970101, end: 20020101

REACTIONS (1)
  - BREAST CANCER METASTATIC [None]
